FAERS Safety Report 7312474-7 (Version None)
Quarter: 2011Q1

REPORT INFORMATION
  Report Type: 
  Country: None (occurrence: None)
  Receive Date: 20110214
  Receipt Date: 20110201
  Transmission Date: 20110831
  Serious: Yes (Other)
  Sender: FDA-Public Use
  Company Number: GER/UKI/11/0017318

PATIENT
  Age: 29 Year
  Sex: Female
  Weight: 73 kg

DRUGS (4)
  1. ASPRIN (ACETYLSALICYLIC ACID) [Concomitant]
  2. E-45 (ACUAFIL) [Concomitant]
  3. BENZYDAMINE (BENZYDAMINE) [Concomitant]
  4. FEXOFENADINE HCL [Suspect]
     Indication: PRODUCT USED FOR UNKNOWN INDICATION
     Dosage: 120 MG, ORAL
     Route: 048
     Dates: start: 20110110, end: 20110111

REACTIONS (1)
  - HYPERTENSION [None]
